FAERS Safety Report 9000200 (Version 3)
Quarter: 2013Q1

REPORT INFORMATION
  Report Type: Report from Study
  Country: JP (occurrence: JP)
  Receive Date: 20130102
  Receipt Date: 20130313
  Transmission Date: 20140127
  Serious: Yes (Other)
  Sender: FDA-Public Use
  Company Number: JP-JNJFOC-20121017128

PATIENT
  Age: 74 Year
  Sex: Female

DRUGS (6)
  1. DUROTEP MT [Suspect]
     Indication: PAIN
     Route: 062
     Dates: start: 20120602, end: 20120609
  2. DUROTEP MT [Suspect]
     Indication: PAIN
     Route: 062
     Dates: start: 20110910, end: 20120601
  3. DUROTEP MT [Suspect]
     Indication: PAIN
     Route: 062
     Dates: start: 20110728, end: 20110909
  4. DUROTEP MT [Suspect]
     Indication: PAIN
     Route: 062
     Dates: start: 20110609, end: 20110728
  5. MORPHINE HYDROCHLORIDE [Concomitant]
     Indication: PAIN
     Route: 048
     Dates: start: 20120609, end: 20120609
  6. VOLTAREN [Concomitant]
     Indication: SPINAL COMPRESSION FRACTURE
     Route: 054
     Dates: start: 20120601, end: 20120704

REACTIONS (3)
  - Spinal compression fracture [Recovering/Resolving]
  - Drug intolerance [Unknown]
  - Wrong technique in drug usage process [Unknown]
